FAERS Safety Report 9109829 (Version 2)
Quarter: 2013Q2

REPORT INFORMATION
  Report Type: Spontaneous
  Country: US (occurrence: US)
  Receive Date: 20130222
  Receipt Date: 20130409
  Transmission Date: 20140414
  Serious: No
  Sender: FDA-Public Use
  Company Number: US-PFIZER INC-2013064311

PATIENT
  Age: 74 Year
  Sex: Female

DRUGS (3)
  1. MEDROL [Suspect]
     Dosage: UNK
  2. PREDNISONE [Suspect]
     Indication: PREMEDICATION
     Dosage: 1 DOSE
     Route: 042
  3. CORTISOL [Suspect]
     Dosage: UNK

REACTIONS (3)
  - Blood pressure increased [Recovered/Resolved]
  - Blood glucose increased [Recovered/Resolved]
  - Drug hypersensitivity [Unknown]
